FAERS Safety Report 4844754-9 (Version None)
Quarter: 2005Q4

REPORT INFORMATION
  Report Type: 
  Country: None (occurrence: None)
  Receive Date: 20051205
  Receipt Date: 20051124
  Transmission Date: 20060501
  Serious: Yes (Other)
  Sender: FDA-Public Use
  Company Number: PHBS2005SE17625

PATIENT
  Age: 39 Year
  Sex: Female

DRUGS (1)
  1. SYNTOCINON [Suspect]

REACTIONS (2)
  - ANGIONEUROTIC OEDEMA [None]
  - DERMATITIS BULLOUS [None]
